FAERS Safety Report 4666408-4 (Version None)
Quarter: 2005Q2

REPORT INFORMATION
  Report Type: 
  Country: None (occurrence: None)
  Receive Date: 20050517
  Receipt Date: 20050511
  Transmission Date: 20051028
  Serious: Yes (Other)
  Sender: FDA-Public Use
  Company Number: 2005065164

PATIENT
  Age: 49 Year
  Sex: Male
  Weight: 58.9676 kg

DRUGS (3)
  1. LIPITOR [Suspect]
     Indication: PROPHYLAXIS
     Dosage: DAILY, ORAL
     Route: 048
  2. CLOPIDOGREL BISULFATE [Suspect]
     Indication: PROPHYLAXIS
     Dosage: ORAL
     Route: 048
  3. ASPIRIN [Concomitant]

REACTIONS (2)
  - CHEST PAIN [None]
  - CORONARY ARTERY OCCLUSION [None]
